FAERS Safety Report 13221856 (Version 1)
Quarter: 2017Q1

REPORT INFORMATION
  Report Type: Spontaneous
  Country: US (occurrence: VE)
  Receive Date: 20170211
  Receipt Date: 20170211
  Transmission Date: 20170428
  Serious: Yes (Life-Threatening, Hospitalization, Other)
  Sender: FDA-Public Use
  Company Number: US-SUNOVION-2017SUN000539

PATIENT
  Age: 76 Year
  Sex: Male

DRUGS (20)
  1. INDACATEROL [Suspect]
     Active Substance: INDACATEROL
     Dosage: 3 DF, QD
     Route: 055
  2. FORADIL [Suspect]
     Active Substance: FORMOTEROL FUMARATE
     Indication: OBSTRUCTIVE AIRWAYS DISORDER
  3. COZAAR [Concomitant]
     Active Substance: LOSARTAN POTASSIUM
     Dosage: UNK
     Dates: start: 2007, end: 2007
  4. ADALAT [Concomitant]
     Active Substance: NIFEDIPINE
     Dosage: UNK
     Dates: start: 2007, end: 2007
  5. INDACATEROL [Suspect]
     Active Substance: INDACATEROL
     Indication: EMPHYSEMA
     Dosage: 600 ?G, QD
     Route: 055
     Dates: start: 2014
  6. KLAS [Concomitant]
     Dosage: UNK
     Dates: start: 201310
  7. INDACATEROL [Suspect]
     Active Substance: INDACATEROL
     Dosage: 400 ?G, UNK
     Route: 055
  8. MIFLONIDE [Suspect]
     Active Substance: BUDESONIDE
     Indication: CHRONIC OBSTRUCTIVE PULMONARY DISEASE
     Dosage: 800 ?G, QD
     Route: 055
     Dates: start: 2004, end: 2012
  9. CEDAX [Concomitant]
     Active Substance: CEFTIBUTEN DIHYDRATE
     Dosage: UNK
     Dates: start: 201310
  10. FORADIL [Suspect]
     Active Substance: FORMOTEROL FUMARATE
     Indication: CHRONIC OBSTRUCTIVE PULMONARY DISEASE
     Dosage: 24 ?G, QD
     Route: 055
     Dates: start: 2004
  11. MIFLONIDE [Suspect]
     Active Substance: BUDESONIDE
     Indication: EMPHYSEMA
     Dosage: UNK, TID
     Route: 055
  12. FORADIL [Suspect]
     Active Substance: FORMOTEROL FUMARATE
     Indication: EMPHYSEMA
  13. LEVOPRONT [Concomitant]
     Dosage: UNK
     Dates: start: 201310
  14. MIFLONIDE [Suspect]
     Active Substance: BUDESONIDE
     Indication: OBSTRUCTIVE AIRWAYS DISORDER
     Dosage: 800 ?G, UNK
     Route: 055
  15. AMLODIPINE [Concomitant]
     Active Substance: AMLODIPINE BESYLATE
     Dosage: UNKNOWN
  16. MADOPAR [Concomitant]
     Active Substance: BENSERAZIDE HYDROCHLORIDE\LEVODOPA
     Dosage: UNK
     Dates: start: 2011
  17. INDACATEROL [Suspect]
     Active Substance: INDACATEROL
     Indication: CHRONIC OBSTRUCTIVE PULMONARY DISEASE
     Dosage: 300 ?G, QD
     Route: 055
     Dates: start: 2001
  18. PROSPAN [Concomitant]
     Active Substance: IVY EXTRACT
     Dosage: UNK
     Dates: start: 201310
  19. KLARICID [Concomitant]
     Active Substance: CLARITHROMYCIN
     Dosage: UNK
     Dates: start: 201310
  20. CLARIVAX [Concomitant]
     Dosage: 50 MG, UNK
     Route: 065

REACTIONS (25)
  - Asphyxia [Unknown]
  - Anxiety [Unknown]
  - Influenza [Recovered/Resolved]
  - Pneumonia [Recovered/Resolved]
  - Condition aggravated [Not Recovered/Not Resolved]
  - Chills [Unknown]
  - General physical health deterioration [Not Recovered/Not Resolved]
  - Malaise [Unknown]
  - Product quality issue [Unknown]
  - Apparent death [Unknown]
  - Dermatitis [Not Recovered/Not Resolved]
  - Feeling abnormal [Unknown]
  - Chest pain [Recovered/Resolved]
  - Weight decreased [Unknown]
  - Pulmonary function test decreased [Unknown]
  - Inspiratory capacity decreased [Unknown]
  - Dizziness [Recovered/Resolved]
  - Emphysema [Not Recovered/Not Resolved]
  - Fatigue [Recovered/Resolved]
  - Lung disorder [Unknown]
  - Cardiovascular symptom [Unknown]
  - Chest discomfort [Recovered/Resolved]
  - Dyspnoea [Not Recovered/Not Resolved]
  - Drug ineffective [Unknown]
  - Blood pressure abnormal [Recovered/Resolved]

NARRATIVE: CASE EVENT DATE: 2011
